FAERS Safety Report 8943677 (Version 2)
Quarter: 2012Q4

REPORT INFORMATION
  Report Type: 
  Country: CN (occurrence: CN)
  Receive Date: 20121204
  Receipt Date: 20121219
  Transmission Date: 20130627
  Serious: Yes (Hospitalization)
  Sender: FDA-Public Use
  Company Number: CN-NOVOPROD-363961

PATIENT
  Age: 54 Year
  Sex: Female
  Weight: 70 kg

DRUGS (2)
  1. NOVOMIX 30 PENFILL [Suspect]
     Indication: TYPE 2 DIABETES MELLITUS
     Dosage: 18 U in the morning, 19 U at noon and 20 U in the evening
     Route: 058
     Dates: start: 20120916
  2. NOVOMIX 30 PENFILL [Suspect]
     Dosage: 18 U in the morning, 19 U at noon and 20 U in the evening
     Route: 058

REACTIONS (3)
  - Vision blurred [Not Recovered/Not Resolved]
  - Drug ineffective [Recovered/Resolved]
  - Diabetes mellitus inadequate control [Recovered/Resolved]
